FAERS Safety Report 16296575 (Version 1)
Quarter: 2019Q2

REPORT INFORMATION
  Report Type: Spontaneous
  Country: US (occurrence: US)
  Receive Date: 20190510
  Receipt Date: 20190510
  Transmission Date: 20190711
  Serious: No
  Sender: FDA-Public Use
  Company Number: US-PFIZER INC-2019199497

PATIENT
  Age: 62 Year
  Sex: Male
  Weight: 140.61 kg

DRUGS (1)
  1. GABAPENTIN. [Suspect]
     Active Substance: GABAPENTIN
     Dosage: 600MG, 3-4 CAPSULES DAILY

REACTIONS (1)
  - Drug ineffective [Unknown]
